FAERS Safety Report 12797000 (Version 1)
Quarter: 2016Q3

REPORT INFORMATION
  Report Type: Spontaneous
  Country: FR (occurrence: FR)
  Receive Date: 20160929
  Receipt Date: 20160929
  Transmission Date: 20161109
  Serious: Yes (Life-Threatening, Hospitalization)
  Sender: FDA-Public Use
  Company Number: FR-ALLERGAN-1670193US

PATIENT
  Age: 31 Year
  Sex: Female

DRUGS (4)
  1. MOCLAMINE [Suspect]
     Active Substance: MOCLOBEMIDE
     Indication: PRODUCT USED FOR UNKNOWN INDICATION
     Dosage: 50 DF, SINGLE
     Route: 048
     Dates: start: 20160822, end: 20160822
  2. ESCITALOPRAM OXALATE UNK [Suspect]
     Active Substance: ESCITALOPRAM OXALATE
     Indication: PRODUCT USED FOR UNKNOWN INDICATION
     Dosage: 50 DF, SINGLE
     Route: 048
     Dates: start: 20160822, end: 20160822
  3. SERESTA [Suspect]
     Active Substance: OXAZEPAM
     Indication: PRODUCT USED FOR UNKNOWN INDICATION
     Dosage: 30 DF, SINGLE
     Route: 048
     Dates: start: 20160822, end: 20160822
  4. TERALITHE [Suspect]
     Active Substance: LITHIUM CARBONATE
     Indication: PRODUCT USED FOR UNKNOWN INDICATION
     Dosage: 3 UNK, UNK
     Route: 048
     Dates: start: 20160822, end: 20160822

REACTIONS (3)
  - Altered state of consciousness [Recovered/Resolved]
  - Overdose [Unknown]
  - Pneumonia aspiration [Recovered/Resolved]

NARRATIVE: CASE EVENT DATE: 20160822
